FAERS Safety Report 4708589-X (Version None)
Quarter: 2005Q3

REPORT INFORMATION
  Report Type: 
  Country: None (occurrence: None)
  Receive Date: 20050706
  Receipt Date: 20050629
  Transmission Date: 20060218
  Serious: Yes (Hospitalization)
  Sender: FDA-Public Use
  Company Number: HQWYE776802SEP04

PATIENT
  Age: 70 Year
  Sex: Female

DRUGS (8)
  1. RAPAMUNE [Suspect]
     Indication: PROPHYLAXIS AGAINST TRANSPLANT REJECTION
     Dosage: 4 MG 1X PER 1 DAY
     Dates: start: 20040623
  2. LASIX [Concomitant]
  3. LABETALOL [Concomitant]
  4. ZOCOR [Concomitant]
  5. SEPTRA [Concomitant]
  6. NYSTATIN [Concomitant]
  7. LOTREL [Concomitant]
  8. GANCICLOVIR [Concomitant]

REACTIONS (5)
  - BLOOD CREATININE INCREASED [None]
  - BLOOD UREA INCREASED [None]
  - DIABETES MELLITUS [None]
  - POST PROCEDURAL COMPLICATION [None]
  - URINE ANALYSIS ABNORMAL [None]
